FAERS Safety Report 8794154 (Version 1)
Quarter: 2012Q4

REPORT INFORMATION
  Report Type: 
  Country: US (occurrence: US)
  Receive Date: 20120918
  Receipt Date: 20120918
  Transmission Date: 20130627
  Serious: Yes (Death)
  Sender: FDA-Public Use
  Company Number: US-BAYER-2012-096623

PATIENT
  Age: 35 Year
  Sex: Female
  Weight: 98.41 kg

DRUGS (5)
  1. YASMIN [Suspect]
  2. ULTRACET [Concomitant]
  3. AMITRIPTYLINE HCL [Concomitant]
  4. OXYCONTIN [Concomitant]
     Dosage: 20 mg, UNK
  5. PHENERGAN [Concomitant]

REACTIONS (2)
  - Pulmonary embolism [Fatal]
  - Thrombosis [Fatal]
